FAERS Safety Report 7147795-4 (Version None)
Quarter: 2010Q4

REPORT INFORMATION
  Report Type: 
  Country: None (occurrence: None)
  Receive Date: 20101209
  Receipt Date: 20081105
  Transmission Date: 20110411
  Serious: No
  Sender: FDA-Public Use
  Company Number: 2008BI029865

PATIENT
  Sex: Female

DRUGS (1)
  1. TYSABRI [Suspect]
     Indication: MULTIPLE SCLEROSIS
     Route: 042
     Dates: start: 20061125, end: 20080820

REACTIONS (3)
  - DRUG INEFFECTIVE [None]
  - MOBILITY DECREASED [None]
  - PROGRESSIVE RELAPSING MULTIPLE SCLEROSIS [None]
